FAERS Safety Report 25473726 (Version 1)
Quarter: 2025Q2

REPORT INFORMATION
  Report Type: Spontaneous
  Country: US (occurrence: US)
  Receive Date: 20250624
  Receipt Date: 20250624
  Transmission Date: 20250716
  Serious: No
  Sender: Unknown Manufacturer
  Company Number: US-KALEO, INC.-2025KL000013

PATIENT
  Age: 30 Year
  Sex: Male

DRUGS (1)
  1. AUVI-Q [Suspect]
     Active Substance: EPINEPHRINE

REACTIONS (1)
  - Device audio issue [Not Recovered/Not Resolved]

NARRATIVE: CASE EVENT DATE: 20250528
